FAERS Safety Report 5407738-8 (Version None)
Quarter: 2007Q3

REPORT INFORMATION
  Report Type: 
  Country: None (occurrence: None)
  Receive Date: 20070807
  Receipt Date: 20070726
  Transmission Date: 20080115
  Serious: Yes (Hospitalization, Other)
  Sender: FDA-Public Use
  Company Number: US-PFIZER INC-2007062927

PATIENT
  Sex: Female
  Weight: 49.9 kg

DRUGS (3)
  1. DIFLUCAN [Suspect]
     Indication: RESPIRATORY TRACT INFECTION
     Route: 042
  2. PREDNISOLONE [Concomitant]
  3. ANBESOL [Concomitant]

REACTIONS (2)
  - RESPIRATORY ACIDOSIS [None]
  - RESPIRATORY FAILURE [None]
